FAERS Safety Report 5365433-8 (Version None)
Quarter: 2007Q2

REPORT INFORMATION
  Report Type: 
  Country: None (occurrence: None)
  Receive Date: 20070530
  Receipt Date: 20070206
  Transmission Date: 20071010
  Serious: No
  Sender: FDA-Public Use
  Company Number: 2006PV023096

PATIENT
  Age: 51 Year
  Sex: Male

DRUGS (3)
  1. BYETTA [Suspect]
     Indication: DIABETES MELLITUS NON-INSULIN-DEPENDENT
     Dosage: 5 MCG; BID; SC
     Route: 058
     Dates: start: 20060201
  2. BYETTA [Suspect]
     Indication: WEIGHT CONTROL
     Dosage: 5 MCG; BID; SC
     Route: 058
     Dates: start: 20060201
  3. INSULIN [Concomitant]

REACTIONS (1)
  - WEIGHT DECREASED [None]
